FAERS Safety Report 12287647 (Version 2)
Quarter: 2016Q2

REPORT INFORMATION
  Report Type: Spontaneous
  Country: IE (occurrence: IE)
  Receive Date: 20160420
  Receipt Date: 20160509
  Transmission Date: 20160815
  Serious: Yes (Hospitalization, Disabling, Other)
  Sender: FDA-Public Use
  Company Number: IE-BAYER-2015-495106

PATIENT
  Age: 49 Year
  Sex: Female

DRUGS (1)
  1. MIRENA [Suspect]
     Active Substance: LEVONORGESTREL
     Indication: CONTRACEPTION
     Dosage: 20 MCG/24HR, CONT
     Route: 015
     Dates: start: 20120830, end: 201512

REACTIONS (18)
  - Pelvic pain [None]
  - Sinus disorder [None]
  - Migraine [None]
  - Vaginal infection [None]
  - Genital haemorrhage [None]
  - Dizziness [None]
  - Confusional state [None]
  - Hair growth abnormal [None]
  - Feeling abnormal [None]
  - Irritable bowel syndrome [None]
  - Ear pain [None]
  - Vision blurred [None]
  - Emotional disorder [None]
  - Vaginal discharge [None]
  - Night sweats [None]
  - Vertigo [None]
  - Anxiety [None]
  - Hirsutism [None]
